FAERS Safety Report 5970369-5 (Version None)
Quarter: 2008Q4

REPORT INFORMATION
  Report Type: 
  Country: None (occurrence: None)
  Receive Date: 20081126
  Receipt Date: 20081021
  Transmission Date: 20090506
  Serious: No
  Sender: FDA-Public Use
  Company Number: US-ABBOTT-08P-163-0483194-00

PATIENT
  Sex: Male

DRUGS (2)
  1. SIMCOR [Suspect]
     Indication: BLOOD CHOLESTEROL
     Dates: start: 20081001
  2. SIMCOR [Suspect]
     Indication: BLOOD PRESSURE

REACTIONS (4)
  - HAEMATOCHEZIA [None]
  - HOT FLUSH [None]
  - PRURITUS [None]
  - RASH [None]
